FAERS Safety Report 9407677 (Version 2)
Quarter: 2013Q3

REPORT INFORMATION
  Report Type: Spontaneous
  Country: US (occurrence: US)
  Receive Date: 20130718
  Receipt Date: 20130826
  Transmission Date: 20140515
  Serious: No
  Sender: FDA-Public Use
  Company Number: US-PFIZER INC-2013209652

PATIENT
  Age: 66 Year
  Sex: Female
  Weight: 73 kg

DRUGS (3)
  1. EFFEXOR XR [Suspect]
     Indication: DEPRESSION
     Dosage: 300 MG (2 CAPSULES OF 150 MG), 1X/DAY
     Route: 048
     Dates: start: 2010
  2. MORPHINE [Concomitant]
     Dosage: UNK
  3. VALIUM [Concomitant]
     Dosage: UNK, AS NEEDED

REACTIONS (5)
  - Pain in extremity [Unknown]
  - Spinal pain [Unknown]
  - Memory impairment [Unknown]
  - Euphoric mood [Unknown]
  - Malaise [Unknown]
